FAERS Safety Report 9228112 (Version 2)
Quarter: 2013Q2

REPORT INFORMATION
  Report Type: Report from Study
  Country: PL (occurrence: PL)
  Receive Date: 20130412
  Receipt Date: 20130521
  Transmission Date: 20140414
  Serious: Yes (Death)
  Sender: FDA-Public Use
  Company Number: PL-ROCHE-1209908

PATIENT
  Age: 63 Year
  Sex: Male

DRUGS (5)
  1. ALTEPLASE [Suspect]
     Indication: ACUTE MYOCARDIAL INFARCTION
     Dosage: BOLUS
     Route: 042
  2. ALTEPLASE [Suspect]
     Dosage: 35 MG/60MIN
     Route: 042
  3. ABCIXIMAB [Suspect]
     Indication: ACUTE MYOCARDIAL INFARCTION
     Dosage: BOLUS
     Route: 042
  4. ABCIXIMAB [Suspect]
     Dosage: 0.125 MCG/KG/MIN
     Route: 042
  5. HEPARIN [Suspect]
     Indication: ACUTE MYOCARDIAL INFARCTION
     Dosage: 40 U/KG BOLUS
     Route: 042

REACTIONS (1)
  - Death [Fatal]
